FAERS Safety Report 15788914 (Version 1)
Quarter: 2019Q1

REPORT INFORMATION
  Report Type: Spontaneous
  Country: US (occurrence: US)
  Receive Date: 20190104
  Receipt Date: 20190104
  Transmission Date: 20190417
  Serious: No
  Sender: FDA-Public Use
  Company Number: US-TEVA-2018-US-988368

PATIENT
  Sex: Female

DRUGS (1)
  1. LORAZEPAM. [Suspect]
     Active Substance: LORAZEPAM
     Route: 065
     Dates: start: 20181206

REACTIONS (5)
  - Burning sensation [Unknown]
  - Decreased appetite [Unknown]
  - Anxiety [Unknown]
  - Chest discomfort [Unknown]
  - Oropharyngeal pain [Unknown]
